FAERS Safety Report 7629359-9 (Version None)
Quarter: 2011Q3

REPORT INFORMATION
  Report Type: 
  Country: None (occurrence: None)
  Receive Date: 20110722
  Receipt Date: 20110715
  Transmission Date: 20111222
  Serious: Yes (Hospitalization)
  Sender: FDA-Public Use
  Company Number: US-JNJFOC-20110706967

PATIENT
  Age: 47 Year
  Sex: Female

DRUGS (10)
  1. SSRI [Concomitant]
     Route: 065
  2. BENZODIAZEPINE NOS [Concomitant]
     Route: 065
  3. CALCIUM ANTAGONISTS [Suspect]
     Indication: PRODUCT USED FOR UNKNOWN INDICATION
     Route: 065
     Dates: start: 20110329
  4. NIFEDIPINE [Concomitant]
     Route: 065
  5. ULTRAM [Suspect]
     Indication: PRODUCT USED FOR UNKNOWN INDICATION
     Dosage: 10-15 ULTRAM
     Route: 065
     Dates: start: 20110329
  6. OTHER HYPNOTICS AND SEDATIVES [Concomitant]
     Route: 065
  7. BUPROPION HCL [Concomitant]
     Route: 065
  8. ANTI-ANXIETY DRUG [Concomitant]
     Route: 065
  9. ANTI-PSYCHOTIC DRUG [Concomitant]
     Route: 065
  10. ESTRADIOL [Concomitant]
     Route: 065

REACTIONS (5)
  - CONVULSION [None]
  - ELECTROCARDIOGRAM QT PROLONGED [None]
  - TACHYCARDIA [None]
  - MULTIPLE DRUG OVERDOSE [None]
  - INTENTIONAL DRUG MISUSE [None]
